FAERS Safety Report 7595407 (Version 3)
Quarter: 2016Q3

REPORT INFORMATION
  Report Type: Spontaneous
  Country: US (occurrence: US)
  Receive Date: 20100920
  Receipt Date: 20160719
  Transmission Date: 20161109
  Serious: Yes (Hospitalization)
  Sender: FDA-Public Use
  Company Number: US-ASTRAZENECA-2010SE16497

PATIENT
  Sex: Female

DRUGS (5)
  1. SEROQUEL XR [Suspect]
     Active Substance: QUETIAPINE FUMARATE
     Indication: BIPOLAR DISORDER
     Dosage: 300.0MG UNKNOWN
     Route: 048
  2. SEROQUEL XR [Suspect]
     Active Substance: QUETIAPINE FUMARATE
     Indication: BIPOLAR DISORDER
     Dosage: 2.0DF UNKNOWN
     Route: 048
  3. SEROQUEL XR [Suspect]
     Active Substance: QUETIAPINE FUMARATE
     Indication: DEPRESSION
     Dosage: 2.0DF UNKNOWN
     Route: 048
  4. UNSPECIFIED MEDICATIONS [Suspect]
     Active Substance: UNSPECIFIED INGREDIENT
     Route: 065
  5. SEROQUEL XR [Suspect]
     Active Substance: QUETIAPINE FUMARATE
     Indication: DEPRESSION
     Dosage: 300.0MG UNKNOWN
     Route: 048

REACTIONS (9)
  - Insomnia [Unknown]
  - Hallucination [Unknown]
  - Memory impairment [Unknown]
  - Muscle twitching [Unknown]
  - Drug dose omission [Unknown]
  - Feeding disorder [Unknown]
  - Bite [Unknown]
  - Withdrawal syndrome [Unknown]
  - Adverse drug reaction [Unknown]
